FAERS Safety Report 8535598-5 (Version None)
Quarter: 2012Q3

REPORT INFORMATION
  Report Type: 
  Country: None (occurrence: None)
  Receive Date: 20120725
  Receipt Date: 20120717
  Transmission Date: 20120928
  Serious: Yes (Hospitalization)
  Sender: FDA-Public Use
  Company Number: US-009507513-1207USA005349

PATIENT

DRUGS (20)
  1. LEKOVIT CA [Concomitant]
     Indication: ROUTINE HEALTH MAINTENANCE
     Dosage: 600 MG, QD
     Dates: start: 20070427
  2. TEMOZOLOMIDE [Suspect]
     Dosage: 200 MG/M2, UNK
     Route: 042
     Dates: start: 20120119
  3. ABT-888 [Suspect]
     Indication: OVARIAN CANCER
     Dosage: 40 MG, BID
     Route: 048
     Dates: start: 20111222
  4. MAGNESIUM (UNSPECIFIED) [Concomitant]
     Indication: HYPOMAGNESAEMIA
  5. ATORVASTATIN CALCIUM [Concomitant]
     Indication: HYPERLIPIDAEMIA
     Dosage: 10 MG, QD
     Dates: start: 20050218
  6. MAGNESIUM OXIDE [Concomitant]
     Indication: ROUTINE HEALTH MAINTENANCE
     Dosage: 400 MG, BID
     Dates: start: 20070813
  7. TEMOZOLOMIDE [Suspect]
     Indication: OVARIAN CANCER
     Dosage: 100 MG/M2, UNK
     Route: 042
     Dates: start: 20111222, end: 20111226
  8. DOXORUBICIN HYDROCHLORIDE [Suspect]
     Dosage: 30 MG/M2, UNK
     Route: 042
     Dates: start: 20101014, end: 20111117
  9. IBUPROFEN [Concomitant]
     Indication: PAIN PROPHYLAXIS
     Dosage: 800 MG, PRN
     Dates: start: 20050527
  10. LEVOTHYROXINE SODIUM [Concomitant]
     Indication: HYPOTHYROIDISM
     Dosage: 75 MICROGRAM, QD
     Dates: start: 20070427
  11. VITAMINS (UNSPECIFIED) [Concomitant]
     Indication: ROUTINE HEALTH MAINTENANCE
     Dosage: 1 DF, QD
     Dates: start: 20070427
  12. NYSTATIN [Concomitant]
     Indication: FUNGAL INFECTION
     Dosage: UNK, PRN
     Dates: start: 20101111
  13. DEXAMETHASONE [Concomitant]
     Indication: PREMEDICATION
     Dosage: 20 MG, QM
     Dates: start: 20100812
  14. DOXORUBICIN HYDROCHLORIDE [Suspect]
     Indication: OVARIAN CANCER
     Dosage: 50 MG/M2, UNK
     Route: 042
     Dates: start: 20100812, end: 20100812
  15. DOXORUBICIN HYDROCHLORIDE [Suspect]
     Dosage: 40 MG/M2, UNK
     Route: 042
     Dates: start: 20100909, end: 20100909
  16. ESCITALOPRAM OXALATE [Concomitant]
     Indication: ANXIETY
  17. CYANOCOBALAMIN [Concomitant]
     Indication: ROUTINE HEALTH MAINTENANCE
     Dosage: UNK
     Dates: start: 20081002
  18. LORAZEPAM [Concomitant]
     Indication: INSOMNIA
     Dosage: 0.5 MG, PRN
     Dates: start: 20100902
  19. HYDROXYZINE PAMOATE [Concomitant]
     Indication: RASH
     Dosage: 25 MG, PRN
     Dates: start: 20110310
  20. DOLASETRON MESYLATE [Concomitant]
     Indication: PREMEDICATION
     Dosage: 100 MG, QM
     Dates: start: 20110812

REACTIONS (1)
  - SMALL INTESTINAL OBSTRUCTION [None]
